FAERS Safety Report 9559878 (Version 3)
Quarter: 2014Q2

REPORT INFORMATION
  Report Type: Spontaneous
  Country: US (occurrence: US)
  Receive Date: 20130927
  Receipt Date: 20140404
  Transmission Date: 20141212
  Serious: No
  Sender: FDA-Public Use
  Company Number: US-PFIZER INC-2013278567

PATIENT
  Age: 55 Year
  Sex: Female

DRUGS (8)
  1. EFFEXOR XR [Suspect]
     Dosage: UNK
  2. EFFEXOR [Suspect]
     Dosage: UNK
  3. VENLAFAXINE HCL [Suspect]
     Dosage: UNK
  4. NAPROXEN SODIUM [Suspect]
     Dosage: UNK
  5. LORTAB [Suspect]
     Indication: PAIN
     Dosage: 1 DF, 4X/DAY (EVERY 6 HOURS)
     Route: 048
  6. CODEINE [Suspect]
     Dosage: UNK
  7. DIPHENHYDRAMINE [Suspect]
     Dosage: UNK
  8. OXYCODONE/PARACETAMOL [Suspect]
     Dosage: UNK

REACTIONS (1)
  - Drug hypersensitivity [Unknown]
